FAERS Safety Report 22126335 (Version 1)
Quarter: 2023Q1

REPORT INFORMATION
  Report Type: Spontaneous
  Country: US (occurrence: US)
  Receive Date: 20230322
  Receipt Date: 20230322
  Transmission Date: 20230418
  Serious: No
  Sender: FDA-Public Use
  Company Number: US-APIL-2308372US

PATIENT
  Age: 52 Year
  Sex: Male

DRUGS (15)
  1. BOTOX COSMETIC [Suspect]
     Active Substance: ONABOTULINUMTOXINA
     Indication: Bruxism
     Dosage: 10 UNITS, SINGLE
     Route: 030
     Dates: start: 202211, end: 202211
  2. BOTOX COSMETIC [Suspect]
     Active Substance: ONABOTULINUMTOXINA
     Indication: Bruxism
     Dosage: 10 UNITS, SINGLE
     Route: 030
     Dates: start: 202211, end: 202211
  3. BOTOX COSMETIC [Suspect]
     Active Substance: ONABOTULINUMTOXINA
     Dosage: 10 UNITS, SINGLE
     Route: 030
     Dates: start: 202211, end: 202211
  4. BOTOX COSMETIC [Suspect]
     Active Substance: ONABOTULINUMTOXINA
     Dosage: 10 UNITS, SINGLE
     Route: 030
     Dates: start: 202211, end: 202211
  5. BOTOX COSMETIC [Suspect]
     Active Substance: ONABOTULINUMTOXINA
     Dosage: 5 UNITS, SINGLE
     Route: 030
     Dates: start: 202211, end: 202211
  6. BOTOX COSMETIC [Suspect]
     Active Substance: ONABOTULINUMTOXINA
     Dosage: 5 UNITS, SINGLE
     Route: 030
     Dates: start: 202211, end: 202211
  7. BOTOX COSMETIC [Suspect]
     Active Substance: ONABOTULINUMTOXINA
     Dosage: 5 UNITS, SINGLE
     Route: 030
     Dates: start: 202211, end: 202211
  8. BOTOX COSMETIC [Suspect]
     Active Substance: ONABOTULINUMTOXINA
     Dosage: 7.5 UNITS, SINGLE
     Route: 030
     Dates: start: 202211, end: 202211
  9. BOTOX COSMETIC [Suspect]
     Active Substance: ONABOTULINUMTOXINA
     Dosage: 7.5 UNITS, SINGLE
     Route: 030
     Dates: start: 202211, end: 202211
  10. BOTOX COSMETIC [Suspect]
     Active Substance: ONABOTULINUMTOXINA
     Dosage: 15 UNITS, SINGLE
     Route: 030
     Dates: start: 202211, end: 202211
  11. BOTOX COSMETIC [Suspect]
     Active Substance: ONABOTULINUMTOXINA
     Dosage: 15 UNITS, SINGLE
     Route: 030
     Dates: start: 202211, end: 202211
  12. FINASTERIDE [Concomitant]
     Active Substance: FINASTERIDE
     Dosage: UNK
  13. ALFUZOSIN [Concomitant]
     Active Substance: ALFUZOSIN
     Dosage: UNK
  14. ALLOPURINOL [Concomitant]
     Active Substance: ALLOPURINOL
     Dosage: UNK
  15. ZYRTEC [Concomitant]
     Active Substance: CETIRIZINE HYDROCHLORIDE
     Dosage: UNK

REACTIONS (5)
  - Off label use [Unknown]
  - Product preparation error [Unknown]
  - Circumstance or information capable of leading to medication error [Unknown]
  - Drug ineffective [Unknown]
  - Product distribution issue [Unknown]

NARRATIVE: CASE EVENT DATE: 20221101
